FAERS Safety Report 9271549 (Version 1)
Quarter: 2013Q2

REPORT INFORMATION
  Report Type: Spontaneous
  Country: FR (occurrence: FR)
  Receive Date: 20130506
  Receipt Date: 20130506
  Transmission Date: 20140414
  Serious: Yes (Hospitalization, Other)
  Sender: FDA-Public Use
  Company Number: FR-GENZYME-RENA-1001782

PATIENT
  Age: 28 Year
  Sex: Female

DRUGS (11)
  1. RENAGEL [Suspect]
     Indication: PRODUCT USED FOR UNKNOWN INDICATION
     Dosage: 0.8 G (2 TABLETS), TID
     Route: 048
     Dates: end: 20130408
  2. SIROCTID [Suspect]
     Indication: PRODUCT USED FOR UNKNOWN INDICATION
     Dosage: 500 MCG, ONCE
     Route: 058
     Dates: start: 20130408, end: 20130408
  3. METHYLPREDNISOLONE [Suspect]
     Indication: PRODUCT USED FOR UNKNOWN INDICATION
     Dosage: 400 MG, QD
     Route: 042
     Dates: start: 20130406, end: 20130408
  4. METHYLPREDNISOLONE [Suspect]
     Dosage: 1 MG/KG, UNK
     Route: 065
     Dates: start: 20130411
  5. OCTAGAM [Suspect]
     Indication: PRODUCT USED FOR UNKNOWN INDICATION
     Dosage: 32 G, QD
     Route: 042
     Dates: start: 20130406, end: 20130408
  6. TRANDATE [Suspect]
     Indication: HYPERTENSION
     Dosage: 200 MG, TID
     Route: 048
     Dates: start: 20130405, end: 20130408
  7. PANTOPRAZOLE [Suspect]
     Indication: PRODUCT USED FOR UNKNOWN INDICATION
     Dosage: UNK, ONE AMPOULE
     Route: 042
     Dates: start: 20130405
  8. PLAQUENIL [Suspect]
     Indication: SYSTEMIC LUPUS ERYTHEMATOSUS
     Dosage: 200 MG, BID
     Route: 048
     Dates: end: 20130408
  9. ASPEGIC [Suspect]
     Indication: PRODUCT USED FOR UNKNOWN INDICATION
     Dosage: 100 MG, QD
     Route: 048
     Dates: end: 20130408
  10. AMLODIPINE [Suspect]
     Indication: PRODUCT USED FOR UNKNOWN INDICATION
     Dosage: 10 MG, QD
     Route: 048
     Dates: end: 20130408
  11. CORTANCYL [Concomitant]
     Indication: PRODUCT USED FOR UNKNOWN INDICATION
     Dosage: 20 MG, QD
     Route: 065
     Dates: start: 201304

REACTIONS (4)
  - Pancreatitis acute [Not Recovered/Not Resolved]
  - Anaemia [Unknown]
  - Thrombocytopenia [Unknown]
  - Systemic lupus erythematosus [Unknown]
